FAERS Safety Report 10038763 (Version 1)
Quarter: 2014Q1

REPORT INFORMATION
  Report Type: Spontaneous
  Country: US (occurrence: None)
  Receive Date: 20140306
  Receipt Date: 20140306
  Transmission Date: 20141002
  Serious: Yes (Other)
  Sender: FDA-Public Use
  Company Number: 163-21880-13050899

PATIENT
  Age: 63 Year
  Sex: Female
  Weight: 64.41 kg

DRUGS (5)
  1. REVLIMID (LENALIDOMIDE) (25 MILLIGRAM, CAPSULES) [Suspect]
     Indication: NON-HODGKIN^S LYMPHOMA
     Dosage: 25 MG, 1 IN 1 D, PO
     Route: 048
     Dates: start: 20130415
  2. ACYCLOVIR (ACICLOVIR) (CAPSULES) [Concomitant]
  3. ALLOPURINOL (ALLOPURINOL) (UNKNOWN) [Concomitant]
  4. ASPIRIN (ACETYLSALICYLIC ACID) (TABLETS) [Concomitant]
  5. TYLENOL (PARACETAMOL) (TABLETS) [Concomitant]

REACTIONS (6)
  - Seasonal allergy [None]
  - Fatigue [None]
  - Rash [None]
  - Urticaria [None]
  - Local swelling [None]
  - Muscle spasms [None]
